FAERS Safety Report 4668732-8 (Version None)
Quarter: 2005Q2

REPORT INFORMATION
  Report Type: 
  Country: None (occurrence: None)
  Receive Date: 20050523
  Receipt Date: 20050301
  Transmission Date: 20051028
  Serious: Yes (Hospitalization, Other)
  Sender: FDA-Public Use
  Company Number: PHEH2005US02637

PATIENT
  Age: 61 Year
  Sex: Male

DRUGS (1)
  1. ZOLEDRONIC ACID [Suspect]
     Indication: PROSTATE CANCER METASTATIC
     Dosage: 4 MG, QMO

REACTIONS (3)
  - MALIGNANT NEOPLASM PROGRESSION [None]
  - OPEN WOUND [None]
  - OSTEONECROSIS [None]
